FAERS Safety Report 6661026-0 (Version None)
Quarter: 2010Q1

REPORT INFORMATION
  Report Type: 
  Country: None (occurrence: None)
  Receive Date: 20100331
  Receipt Date: 20100324
  Transmission Date: 20100710
  Serious: Yes (Other)
  Sender: FDA-Public Use
  Company Number: NL-ROCHE-689446

PATIENT
  Sex: Female
  Weight: 54 kg

DRUGS (4)
  1. TOCILIZUMAB [Suspect]
     Indication: RHEUMATOID ARTHRITIS
     Route: 042
     Dates: start: 20090930, end: 20100217
  2. METHOTREXATE [Concomitant]
     Dates: start: 20060519, end: 20100203
  3. SELDIAR [Concomitant]
     Dates: start: 20070206
  4. OMEPRAZOLE [Concomitant]
     Dates: start: 20090713

REACTIONS (1)
  - COLON CANCER [None]
